FAERS Safety Report 4550970-6 (Version None)
Quarter: 2004Q4

REPORT INFORMATION
  Report Type: 
  Country: None (occurrence: None)
  Receive Date: 20041217
  Receipt Date: 20040914
  Transmission Date: 20050328
  Serious: No
  Sender: FDA-Public Use
  Company Number: 2004-BP-08284BP

PATIENT
  Age: 76 Year
  Sex: Female

DRUGS (4)
  1. SPIRIVA [Suspect]
     Indication: CHRONIC OBSTRUCTIVE AIRWAYS DISEASE
     Dosage: 18 MCG (18 MCG), IH
     Route: 055
     Dates: start: 20040622, end: 20040929
  2. MIACALCIN [Suspect]
     Indication: OSTEOPOROSIS
     Dosage: 200 U, PO; DOES NOT RECALL
     Route: 048
  3. ADVAIR (SERETIDE MITE) [Concomitant]
  4. ALBUTEROL [Concomitant]

REACTIONS (5)
  - ARTHRALGIA [None]
  - MUSCLE CRAMP [None]
  - MUSCULOSKELETAL STIFFNESS [None]
  - MYALGIA [None]
  - SLEEP DISORDER [None]
